FAERS Safety Report 6666575-7 (Version None)
Quarter: 2010Q2

REPORT INFORMATION
  Report Type: 
  Country: None (occurrence: None)
  Receive Date: 20100404
  Receipt Date: 20100126
  Transmission Date: 20101027
  Serious: No
  Sender: FDA-Public Use
  Company Number: US-ALLERGAN-1002123US

PATIENT
  Age: 81 Year
  Sex: Female

DRUGS (2)
  1. TIMOLOL MALEATE [Suspect]
     Indication: INTRAOCULAR PRESSURE INCREASED
     Dosage: 1 GTT, QAM
     Dates: end: 20100111
  2. TIMOLOL MALEATE [Suspect]
     Dosage: 1 GTT, QAM
     Dates: end: 20100111

REACTIONS (1)
  - EYE IRRITATION [None]
